FAERS Safety Report 7581180-6 (Version None)
Quarter: 2011Q2

REPORT INFORMATION
  Report Type: 
  Country: None (occurrence: None)
  Receive Date: 20110629
  Receipt Date: 20110615
  Transmission Date: 20111010
  Serious: Yes (Hospitalization)
  Sender: FDA-Public Use
  Company Number: FR-GENENTECH-320573

PATIENT
  Sex: Male
  Weight: 117 kg

DRUGS (7)
  1. PREVISCAN (FRANCE) [Concomitant]
     Indication: PRODUCT USED FOR UNKNOWN INDICATION
  2. RAMIPRIL [Concomitant]
     Indication: PRODUCT USED FOR UNKNOWN INDICATION
  3. LANTUS [Concomitant]
     Indication: DIABETES MELLITUS
  4. IRBESARTAN [Concomitant]
     Indication: PRODUCT USED FOR UNKNOWN INDICATION
  5. PLAVIX [Concomitant]
     Indication: PRODUCT USED FOR UNKNOWN INDICATION
  6. EZETIMIBE [Concomitant]
     Indication: PRODUCT USED FOR UNKNOWN INDICATION
  7. RANIBIZUMAB [Suspect]
     Indication: MACULAR OEDEMA
     Dosage: 0.5 MG, UNKNOWN
     Route: 031
     Dates: start: 20110303

REACTIONS (2)
  - CHEST PAIN [None]
  - CONCOMITANT DISEASE PROGRESSION [None]
